FAERS Safety Report 15790216 (Version 5)
Quarter: 2019Q2

REPORT INFORMATION
  Report Type: Spontaneous
  Country: US (occurrence: US)
  Receive Date: 20190104
  Receipt Date: 20190426
  Transmission Date: 20190711
  Serious: Yes (Other)
  Sender: FDA-Public Use
  Company Number: US-PFIZER INC-2018534518

PATIENT
  Age: 67 Year
  Sex: Female
  Weight: 80 kg

DRUGS (1)
  1. FENTANYL CITRATE. [Suspect]
     Active Substance: FENTANYL CITRATE
     Indication: SEDATION
     Dosage: 100 UG, 1X/DAY
     Route: 042
     Dates: start: 20181227

REACTIONS (5)
  - Product use in unapproved indication [Unknown]
  - Oxygen saturation decreased [Not Recovered/Not Resolved]
  - Heart rate decreased [Unknown]
  - Sedation complication [Recovered/Resolved]
  - Chest discomfort [Unknown]

NARRATIVE: CASE EVENT DATE: 20181227
